FAERS Safety Report 5364033-3 (Version None)
Quarter: 2007Q2

REPORT INFORMATION
  Report Type: 
  Country: None (occurrence: None)
  Receive Date: 20070530
  Receipt Date: 20070108
  Transmission Date: 20071010
  Serious: No
  Sender: FDA-Public Use
  Company Number: 2007PV028070

PATIENT
  Age: 62 Year
  Sex: Female
  Weight: 71.6683 kg

DRUGS (5)
  1. BYETTA [Suspect]
     Indication: DIABETES MELLITUS NON-INSULIN-DEPENDENT
     Dosage: 5 MCG; BID; SC, 5 MCG, BID; SC
     Route: 058
     Dates: start: 20070105
  2. BYETTA [Suspect]
     Indication: DIABETES MELLITUS NON-INSULIN-DEPENDENT
     Dosage: 5 MCG; BID; SC, 5 MCG, BID; SC
     Route: 058
     Dates: start: 20070106
  3. GLIPIZIDE/METFORMIN [Concomitant]
  4. LAMIR INSULIN [Concomitant]
  5. METAGLIP [Concomitant]

REACTIONS (9)
  - ANOREXIA [None]
  - COUGH [None]
  - DIARRHOEA [None]
  - NASOPHARYNGITIS [None]
  - NAUSEA [None]
  - PAIN [None]
  - RHINORRHOEA [None]
  - VOMITING [None]
  - WEIGHT DECREASED [None]
